FAERS Safety Report 8232230-5 (Version None)
Quarter: 2012Q1

REPORT INFORMATION
  Report Type: 
  Country: None (occurrence: None)
  Receive Date: 20120323
  Receipt Date: 20120314
  Transmission Date: 20120608
  Serious: Yes (Hospitalization)
  Sender: FDA-Public Use
  Company Number: US-ABBOTT-12P-163-0916044-00

PATIENT
  Sex: Female
  Weight: 85.8 kg

DRUGS (16)
  1. CIMZIA [Concomitant]
     Indication: CROHN'S DISEASE
     Dates: start: 20090213, end: 20090430
  2. FOLIC ACID [Concomitant]
     Indication: VITAMIN SUPPLEMENTATION
     Dates: start: 20070101
  3. FERTILITY INJECTIONS [Concomitant]
     Indication: INFERTILITY
     Route: 050
  4. CIMZIA [Concomitant]
     Dates: start: 20090430
  5. SULFASALAZINE [Concomitant]
     Indication: CROHN'S DISEASE
     Dates: start: 20070101
  6. HUMIRA [Suspect]
     Route: 058
     Dates: end: 20090214
  7. ASPIRIN [Concomitant]
     Indication: PRODUCT USED FOR UNKNOWN INDICATION
  8. PROGESTERONE [Concomitant]
     Indication: CERVIX DISORDER
     Route: 067
  9. HUMIRA [Suspect]
     Indication: CROHN'S DISEASE
     Dosage: BASELINE
     Route: 058
     Dates: start: 20050504, end: 20050504
  10. PREDNISONE TAB [Concomitant]
     Indication: CROHN'S DISEASE
  11. ORTHO TRI-CYCLEN [Concomitant]
     Indication: CONTRACEPTION
     Dosage: 1 PILL QD
     Dates: start: 20050101
  12. PREDNISONE TAB [Concomitant]
     Indication: ERYTHEMA NODOSUM
     Dates: start: 20090420
  13. SULFASALAZINE [Concomitant]
  14. HUMIRA [Suspect]
     Dosage: WEEK 2
     Route: 058
  15. METHOTREXATE [Concomitant]
     Indication: CROHN'S DISEASE
     Dates: start: 20040101
  16. FLAGYL [Concomitant]
     Indication: CROHN'S DISEASE
     Dates: start: 20070101

REACTIONS (1)
  - PREMATURE DELIVERY [None]
